FAERS Safety Report 11653482 (Version 1)
Quarter: 2015Q4

REPORT INFORMATION
  Report Type: Other
  Country: US (occurrence: US)
  Receive Date: 20151022
  Receipt Date: 20151022
  Transmission Date: 20160304
  Serious: No
  Sender: FDA-Public Use
  Company Number: US-DEP_08348_2015

PATIENT
  Age: 44 Year
  Sex: Female
  Weight: 85 kg

DRUGS (10)
  1. GABAPENTIN. [Concomitant]
     Active Substance: GABAPENTIN
     Indication: NERVE INJURY
     Route: 048
     Dates: start: 2005
  2. NUCYNTA ER [Suspect]
     Active Substance: TAPENTADOL HYDROCHLORIDE
     Indication: NECK PAIN
     Route: 048
     Dates: start: 20150812
  3. TRAZODONE [Concomitant]
     Active Substance: TRAZODONE HYDROCHLORIDE
     Indication: SLEEP DISORDER
     Route: 048
     Dates: start: 201502
  4. CYMBALTA [Concomitant]
     Active Substance: DULOXETINE HYDROCHLORIDE
     Indication: FIBROMYALGIA
     Route: 048
     Dates: start: 2005
  5. NUCYNTA ER [Suspect]
     Active Substance: TAPENTADOL HYDROCHLORIDE
     Indication: BACK PAIN
     Route: 048
     Dates: start: 20150812
  6. GABAPENTIN. [Concomitant]
     Active Substance: GABAPENTIN
     Indication: BURNING SENSATION
     Route: 048
     Dates: start: 2005
  7. KLONOPIN [Concomitant]
     Active Substance: CLONAZEPAM
     Indication: ANXIETY
     Route: 048
     Dates: start: 201408
  8. CYMBALTA [Concomitant]
     Active Substance: DULOXETINE HYDROCHLORIDE
     Indication: DEPRESSION
     Route: 048
     Dates: start: 2005
  9. NUCYNTA ER [Suspect]
     Active Substance: TAPENTADOL HYDROCHLORIDE
     Indication: FIBROMYALGIA
     Route: 048
     Dates: start: 20150812
  10. NUCYNTA ER [Suspect]
     Active Substance: TAPENTADOL HYDROCHLORIDE
     Indication: MUSCULOSKELETAL PAIN
     Route: 048
     Dates: start: 20150812

REACTIONS (4)
  - Somnolence [Not Recovered/Not Resolved]
  - Agitation [Not Recovered/Not Resolved]
  - Drug ineffective [Not Recovered/Not Resolved]
  - Product quality issue [Not Recovered/Not Resolved]

NARRATIVE: CASE EVENT DATE: 20150812
